FAERS Safety Report 5775617-2 (Version None)
Quarter: 2008Q2

REPORT INFORMATION
  Report Type: 
  Country: None (occurrence: None)
  Receive Date: 20080617
  Receipt Date: 20080610
  Transmission Date: 20081010
  Serious: Yes (Other)
  Sender: FDA-Public Use
  Company Number: AT-ASTRAZENECA-2008PK01266

PATIENT
  Age: 72 Year
  Sex: Male
  Weight: 66 kg

DRUGS (7)
  1. CRESTOR [Suspect]
     Indication: HYPERLIPIDAEMIA
     Route: 048
     Dates: start: 20080314
  2. SEDACORON [Concomitant]
     Indication: ATRIAL FIBRILLATION
     Dates: start: 20080315, end: 20080329
  3. SEDACORON [Concomitant]
     Dates: start: 20080330
  4. SINTROM [Concomitant]
     Indication: ANTICOAGULATION DRUG LEVEL THERAPEUTIC
     Dosage: 5 X 0.5 DF / PER WEEK
     Dates: start: 19890301, end: 20080502
  5. SINTROM [Concomitant]
     Dosage: 2 X 0.25 DF / PER WEEK
     Dates: start: 19890301, end: 20080502
  6. MEPRIL [Concomitant]
     Indication: HYPERTENSION
     Dates: start: 20070201
  7. NOMEXOR [Concomitant]
     Indication: HYPERTENSION
     Route: 048
     Dates: start: 20051001

REACTIONS (1)
  - HAEMATOMA [None]
